FAERS Safety Report 8505382-7 (Version None)
Quarter: 2012Q2

REPORT INFORMATION
  Report Type: 
  Country: None (occurrence: None)
  Receive Date: 20120405
  Receipt Date: 20091014
  Transmission Date: 20120825
  Serious: Yes (Hospitalization)
  Sender: FDA-Public Use
  Company Number: PHEH2009US13730

PATIENT
  Sex: Female

DRUGS (4)
  1. MELOXICAM [Concomitant]
  2. CITRACAL + D (CALCIUM CITRATE, ERGOCALCIFEROL) [Concomitant]
  3. GLUCOSAMINE W/CHONDROITIN (CHONDROITIN SULFATE, GLUCOSAMINE) [Suspect]
  4. RECLAST [Suspect]
     Dates: start: 20090121, end: 20090121

REACTIONS (3)
  - OEDEMA PERIPHERAL [None]
  - JOINT SWELLING [None]
  - ARTHRALGIA [None]
